FAERS Safety Report 19659747 (Version 1)
Quarter: 2021Q3

REPORT INFORMATION
  Report Type: Spontaneous
  Country: US (occurrence: US)
  Receive Date: 20210804
  Receipt Date: 20210804
  Transmission Date: 20211014
  Serious: No
  Sender: FDA-Public Use
  Company Number: US-ASTRAZENECA-2021A601231

PATIENT
  Age: 29853 Day
  Sex: Female
  Weight: 42.2 kg

DRUGS (5)
  1. MELTHYLPREDNISONE [Concomitant]
  2. LOW DOSE ASPIRIN [Concomitant]
     Active Substance: ASPIRIN
  3. BUDESONIDE AND FORMOTEROL AEROSOL [Suspect]
     Active Substance: BUDESONIDE\FORMOTEROL FUMARATE DIHYDRATE
     Indication: CHRONIC OBSTRUCTIVE PULMONARY DISEASE
     Dosage: 80/4.5MCG, 2 PUFFS TWICE DAILY
     Route: 055
     Dates: start: 20210629
  4. ATORVASTATIN [Concomitant]
     Active Substance: ATORVASTATIN
  5. DORZOLAMIDE HCL [Concomitant]
     Active Substance: DORZOLAMIDE HYDROCHLORIDE
     Indication: OPEN ANGLE GLAUCOMA

REACTIONS (9)
  - Vision blurred [Unknown]
  - Palpitations [Not Recovered/Not Resolved]
  - Throat irritation [Not Recovered/Not Resolved]
  - Weight decreased [Unknown]
  - Pruritus [Recovering/Resolving]
  - Rash [Recovering/Resolving]
  - Dry mouth [Not Recovered/Not Resolved]
  - Dry throat [Not Recovered/Not Resolved]
  - Decreased appetite [Unknown]

NARRATIVE: CASE EVENT DATE: 20210630
